FAERS Safety Report 5271466-2 (Version None)
Quarter: 2007Q1

REPORT INFORMATION
  Report Type: 
  Country: None (occurrence: None)
  Receive Date: 20070321
  Receipt Date: 20070315
  Transmission Date: 20070707
  Serious: Yes (Death, Hospitalization, Other)
  Sender: FDA-Public Use
  Company Number: SE-SHR-SE-2006-027439

PATIENT
  Age: 60 Year
  Sex: Male
  Weight: 84.1 kg

DRUGS (9)
  1. CAMPATH [Suspect]
     Dosage: 3 MG, 1 DOSE
     Route: 042
     Dates: start: 20051024, end: 20051024
  2. CAMPATH [Suspect]
     Dosage: 10 MG, 1 DOSE
     Route: 042
     Dates: start: 20051025, end: 20051025
  3. CAMPATH [Suspect]
     Dosage: 30 MG, 1 DOSE
     Route: 042
     Dates: start: 20051026, end: 20051026
  4. CAMPATH [Suspect]
     Dosage: 30 MG, CYCLES
     Route: 042
     Dates: start: 20051107, end: 20060329
  5. FLUDARABINE PHOSPHATE [Suspect]
     Dosage: 60 MG, CYCLES
     Route: 042
     Dates: start: 20051107, end: 20060329
  6. VALACYCLOVIR HCL [Concomitant]
     Indication: PROPHYLAXIS
     Route: 048
     Dates: start: 20061025
  7. TRIMETHOPRIM [Concomitant]
     Indication: PROPHYLAXIS
     Route: 048
     Dates: start: 20061026
  8. OMEPRAZOLE [Concomitant]
     Dates: start: 20061009
  9. FLUCONAZOLE [Concomitant]
     Dates: start: 20061009

REACTIONS (1)
  - CHRONIC LYMPHOCYTIC LEUKAEMIA TRANSFORMATION [None]
